FAERS Safety Report 22260381 (Version 1)
Quarter: 2023Q2

REPORT INFORMATION
  Report Type: Report from Study
  Country: GB (occurrence: GB)
  Receive Date: 20230427
  Receipt Date: 20230427
  Transmission Date: 20230721
  Serious: Yes (Other)
  Sender: FDA-Public Use
  Company Number: GB-SAMSUNG BIOEPIS-SB-2023-03771

PATIENT
  Age: 59 Year
  Sex: Female

DRUGS (1)
  1. IMRALDI [Suspect]
     Active Substance: ADALIMUMAB
     Indication: Rheumatoid arthritis
     Dosage: STRENGTH: 40 MG/ 0.8 ML;
     Route: 058

REACTIONS (5)
  - Immunosuppression [Unknown]
  - Impaired healing [Unknown]
  - Malaise [Unknown]
  - Illness [Unknown]
  - Drug ineffective [Unknown]
